FAERS Safety Report 5086141-7 (Version None)
Quarter: 2006Q3

REPORT INFORMATION
  Report Type: 
  Country: None (occurrence: None)
  Receive Date: 20060818
  Receipt Date: 20060711
  Transmission Date: 20061208
  Serious: Yes (Other)
  Sender: FDA-Public Use
  Company Number: 2006086779

PATIENT
  Age: 71 Year
  Sex: Male
  Weight: 60 kg

DRUGS (2)
  1. VFEND [Suspect]
     Dosage: 400 MG, ORAL
     Route: 048
     Dates: start: 20060630, end: 20060703
  2. ZYVOX [Suspect]
     Dosage: 1200 MG, INTRAVENOUS
     Route: 042
     Dates: start: 20060630, end: 20060703

REACTIONS (2)
  - BLOOD CREATININE INCREASED [None]
  - RENAL IMPAIRMENT [None]
